FAERS Safety Report 21695592 (Version 1)
Quarter: 2022Q4

REPORT INFORMATION
  Report Type: Spontaneous
  Country: US (occurrence: None)
  Receive Date: 20221207
  Receipt Date: 20221207
  Transmission Date: 20230112
  Serious: No
  Sender: FDA-Public Use
  Company Number: None

PATIENT
  Age: 41 Year
  Sex: Male
  Weight: 63.9 kg

DRUGS (7)
  1. NYSTATIN [Suspect]
     Active Substance: NYSTATIN
     Indication: Candida infection
     Dosage: OTHER STRENGTH : U;?OTHER QUANTITY : 1 TABLET(S);?OTHER FREQUENCY : ONLY TAKEN ONCE.;?
     Route: 048
     Dates: start: 20221206, end: 20221206
  2. DICYCLOMINE [Concomitant]
     Active Substance: DICYCLOMINE HYDROCHLORIDE
  3. FAMOTIDINE [Concomitant]
     Active Substance: FAMOTIDINE
  4. ^Alive^ Gummy Multi-vitamin [Concomitant]
  5. Liquid Sublingual D3 [Concomitant]
  6. DIETARY SUPPLEMENT [Concomitant]
     Active Substance: DIETARY SUPPLEMENT
  7. COCONUT OIL [Concomitant]
     Active Substance: COCONUT OIL

REACTIONS (4)
  - Treatment noncompliance [None]
  - Metamorphopsia [None]
  - Headache [None]
  - Visual impairment [None]

NARRATIVE: CASE EVENT DATE: 20221206
